FAERS Safety Report 20407345 (Version 1)
Quarter: 2022Q1

REPORT INFORMATION
  Report Type: Spontaneous
  Country: CN (occurrence: CN)
  Receive Date: 20220131
  Receipt Date: 20220131
  Transmission Date: 20220423
  Serious: Yes (Other)
  Sender: FDA-Public Use
  Company Number: CN-ELI_LILLY_AND_COMPANY-CN202201001859

PATIENT
  Age: 36 Year
  Sex: Male
  Weight: 54 kg

DRUGS (8)
  1. CIALIS [Suspect]
     Active Substance: TADALAFIL
     Indication: Erectile dysfunction
     Dosage: 5 MG, DAILY
     Route: 048
     Dates: start: 202004
  2. CIALIS [Suspect]
     Active Substance: TADALAFIL
     Dosage: 5 MG, DAILY
     Route: 048
     Dates: start: 20200515, end: 202009
  3. CIALIS [Suspect]
     Active Substance: TADALAFIL
     Dosage: 5 MG, QOD
     Route: 048
     Dates: start: 202009, end: 202009
  4. CIALIS [Suspect]
     Active Substance: TADALAFIL
     Dosage: 5 MG, DAILY
     Route: 048
     Dates: start: 202009
  5. CIALIS [Suspect]
     Active Substance: TADALAFIL
     Dosage: 5 MG, OTHER (INTERMITTENTLY)
     Route: 048
  6. CIALIS [Suspect]
     Active Substance: TADALAFIL
     Dosage: 5 MG, DAILY
     Route: 048
     Dates: end: 20210405
  7. CIALIS [Suspect]
     Active Substance: TADALAFIL
     Dosage: 5 MG, QOD
     Route: 048
  8. CIALIS [Suspect]
     Active Substance: TADALAFIL
     Dosage: 5 MG, OTHER (INTERMITTENTLY)
     Route: 048
     Dates: end: 20211205

REACTIONS (18)
  - Cerebral haemorrhage [Recovering/Resolving]
  - Skin discolouration [Recovering/Resolving]
  - Coating in mouth [Recovering/Resolving]
  - Oral discomfort [Recovering/Resolving]
  - Oral disorder [Recovering/Resolving]
  - Angiopathy [Recovering/Resolving]
  - Haemangioma [Recovering/Resolving]
  - Raynaud^s phenomenon [Recovering/Resolving]
  - Headache [Recovering/Resolving]
  - Heart rate increased [Recovering/Resolving]
  - Dizziness [Recovering/Resolving]
  - Dyspepsia [Recovering/Resolving]
  - Rash [Not Recovered/Not Resolved]
  - Epistaxis [Recovering/Resolving]
  - Drug ineffective [Unknown]
  - Inappropriate schedule of product administration [Unknown]
  - Product dose omission issue [Unknown]
  - Off label use [Unknown]

NARRATIVE: CASE EVENT DATE: 20200901
